FAERS Safety Report 9348855 (Version 3)
Quarter: 2014Q1

REPORT INFORMATION
  Report Type: Spontaneous
  Country: US (occurrence: US)
  Receive Date: 20130614
  Receipt Date: 20140207
  Transmission Date: 20141002
  Serious: Yes (Hospitalization)
  Sender: FDA-Public Use
  Company Number: US-BAYER-2013-071527

PATIENT
  Age: 35 Year
  Sex: Female
  Weight: 181 kg

DRUGS (22)
  1. BEYAZ [Suspect]
     Indication: DYSFUNCTIONAL UTERINE BLEEDING
     Dosage: UNK
     Dates: start: 201204
  2. YAZ [Suspect]
     Dosage: UNK
     Dates: start: 201204, end: 201205
  3. ALLOPURINOL [Concomitant]
     Indication: GOUT
     Dosage: 100 MG, EVERY DAY
     Route: 048
  4. KEFLEX [Concomitant]
     Dosage: 500 MG, EVERY DAY
     Route: 048
  5. DOXYCYCLINE HYCLATE [Concomitant]
     Dosage: 100 MG, EVERY DAY
     Route: 048
  6. FENOFIBRATE [Concomitant]
     Indication: DYSLIPIDAEMIA
     Dosage: 54 MG, EVERY DAY
     Route: 048
  7. GLUCOPHAGE [Concomitant]
     Route: 048
  8. JANUVIA [Concomitant]
     Dosage: 100 MG, EVERY DAY
     Route: 048
  9. LISINOPRIL [Concomitant]
     Indication: RENAL FAILURE CHRONIC
     Dosage: UNK, EVERY DAY
     Route: 048
  10. PANTOPRAZOLE [Concomitant]
     Indication: GASTROOESOPHAGEAL REFLUX DISEASE
     Dosage: 40 MG, EVERY DAY
     Route: 048
  11. SIMVASTATIN [Concomitant]
     Dosage: 20 MG, EVERY DAY
     Route: 048
  12. VITAMIN D2 [Concomitant]
     Indication: NUTRITIONAL SUPPLEMENTATION
     Dosage: 50000 U, EVERY DAY
     Route: 048
  13. WELLBUTRIN [Concomitant]
     Indication: DEPRESSION
     Dosage: 100 MG, UNK
     Route: 048
  14. WELLBUTRIN [Concomitant]
     Indication: ANXIETY
  15. SYMBICORT [Concomitant]
  16. ALBUTEROL [Concomitant]
  17. FLUTICASONE [Concomitant]
  18. BETAMETHASONE [Concomitant]
  19. INSULIN [Concomitant]
     Indication: TYPE 2 DIABETES MELLITUS
  20. BUDESONIDE [Concomitant]
  21. BACTRIM DS [Concomitant]
     Indication: CELLULITIS
  22. METFORMIN [Concomitant]

REACTIONS (6)
  - Deep vein thrombosis [None]
  - Thrombophlebitis superficial [None]
  - Deep vein thrombosis [None]
  - Emotional distress [None]
  - Injury [None]
  - Pain [None]
